FAERS Safety Report 5072853-8 (Version None)
Quarter: 2006Q3

REPORT INFORMATION
  Report Type: 
  Country: None (occurrence: None)
  Receive Date: 20060802
  Receipt Date: 20060724
  Transmission Date: 20061208
  Serious: Yes (Other)
  Sender: FDA-Public Use
  Company Number: HQWYE364426JUL06

PATIENT
  Age: 72 Year
  Sex: Male

DRUGS (4)
  1. RAPAMUNE [Suspect]
     Indication: RENAL TRANSPLANT
     Dosage: 5 MG 1X PER 1 DAY
     Dates: start: 20030201, end: 20031218
  2. PREDNISONE TAB [Concomitant]
  3. MYCOPHENOLATE MOFETIL [Concomitant]
  4. TACROLIMUS (TACROLIMUS) [Concomitant]

REACTIONS (7)
  - CHRONIC ALLOGRAFT NEPHROPATHY [None]
  - DEEP VEIN THROMBOSIS [None]
  - HAEMODIALYSIS [None]
  - HERPES VIRUS INFECTION [None]
  - KAPOSI'S SARCOMA [None]
  - KIDNEY TRANSPLANT REJECTION [None]
  - PNEUMONITIS [None]
